FAERS Safety Report 24867523 (Version 1)
Quarter: 2025Q1

REPORT INFORMATION
  Report Type: Spontaneous
  Country: US (occurrence: None)
  Receive Date: 20250118
  Receipt Date: 20250118
  Transmission Date: 20250408
  Serious: Yes (Hospitalization)
  Sender: FDA-CTU
  Company Number: None

PATIENT
  Sex: Female

DRUGS (3)
  1. TADALAFIL [Suspect]
     Active Substance: TADALAFIL
     Indication: Pulmonary arterial hypertension
     Dosage: FREQUENCY : DAILY;?
     Route: 048
     Dates: start: 202309
  2. UPTRAVI [Suspect]
     Active Substance: SELEXIPAG
  3. OPSUMIT [Suspect]
     Active Substance: MACITENTAN

REACTIONS (1)
  - Oxygen saturation decreased [None]
